FAERS Safety Report 6093828-6 (Version None)
Quarter: 2009Q1

REPORT INFORMATION
  Report Type: 
  Country: None (occurrence: None)
  Receive Date: 20090223
  Receipt Date: 20090223
  Transmission Date: 20090719
  Serious: Yes (Other)
  Sender: FDA-Public Use
  Company Number: None

PATIENT
  Sex: Female
  Weight: 61.2356 kg

DRUGS (1)
  1. RECLAST [Suspect]
     Indication: OSTEOPOROSIS
     Dosage: ONCE IV DRIP
     Route: 041
     Dates: start: 20081110, end: 20081110

REACTIONS (7)
  - DRUG ADMINISTRATION ERROR [None]
  - FACE INJURY [None]
  - IMPAIRED HEALING [None]
  - MUSCLE SPASMS [None]
  - MUSCULOSKELETAL PAIN [None]
  - OSTEONECROSIS [None]
  - TOOTH DISORDER [None]
